FAERS Safety Report 21144011 (Version 1)
Quarter: 2022Q3

REPORT INFORMATION
  Report Type: Spontaneous
  Country: US (occurrence: US)
  Receive Date: 20220728
  Receipt Date: 20220728
  Transmission Date: 20221026
  Serious: No
  Sender: FDA-Public Use
  Company Number: US-NOVARTISTESTPH-NVSC2022US169076

PATIENT

DRUGS (1)
  1. OMEPRAZOLE [Suspect]
     Active Substance: OMEPRAZOLE
     Indication: Barrett^s oesophagus
     Dosage: 1 DOSAGE FORM
     Route: 065

REACTIONS (3)
  - Abdominal discomfort [Unknown]
  - Abdominal pain [Recovered/Resolved]
  - Product use in unapproved indication [Unknown]
